FAERS Safety Report 15351969 (Version 1)
Quarter: 2018Q4

REPORT INFORMATION
  Report Type: Spontaneous
  Country: IT (occurrence: IT)
  Receive Date: 20180905
  Receipt Date: 20180905
  Transmission Date: 20190204
  Serious: Yes (Other)
  Sender: FDA-Public Use
  Company Number: IT-PFIZER INC-2018356129

PATIENT
  Age: 39 Year
  Sex: Male

DRUGS (1)
  1. TRIATEC (RAMIPRIL) [Suspect]
     Active Substance: RAMIPRIL
     Indication: HYPERTENSION
     Dosage: 2.5 MG, DAILY
     Route: 048
     Dates: start: 20161102, end: 20180813

REACTIONS (1)
  - Palatal oedema [Recovered/Resolved]

NARRATIVE: CASE EVENT DATE: 20180804
